FAERS Safety Report 7221434-6 (Version None)
Quarter: 2011Q1

REPORT INFORMATION
  Report Type: 
  Country: None (occurrence: None)
  Receive Date: 20110112
  Receipt Date: 20110104
  Transmission Date: 20110831
  Serious: Yes (Hospitalization)
  Sender: FDA-Public Use
  Company Number: ES-ELI_LILLY_AND_COMPANY-ES201101000844

PATIENT
  Sex: Female
  Weight: 65 kg

DRUGS (6)
  1. IDEOS [Concomitant]
     Indication: OSTEOPOROSIS
     Dosage: UNK, DAILY (1/D)
     Route: 048
  2. NOLOTIL [Concomitant]
     Indication: PAIN
     Dosage: UNK, AS NEEDED
     Route: 048
  3. TRANKIMAZIN [Concomitant]
     Indication: OSTEOPOROSIS
     Dosage: 0.5, 2/D
     Route: 048
  4. ACTONEL [Concomitant]
     Indication: OSTEOPOROSIS
     Dosage: UNK, WEEKLY (1/W)
     Route: 048
     Dates: end: 20101201
  5. FORTEO [Suspect]
     Indication: OSTEOPOROSIS
     Dosage: 20 UG, DAILY (1/D)
     Route: 058
     Dates: start: 20090801
  6. DUSPATALIN [Concomitant]
     Indication: IRRITABLE BOWEL SYNDROME
     Dosage: TAKES TREATMENT FOR 10 DAYS AND AFTER HAS A REST FOR 10 DAYS
     Route: 048

REACTIONS (1)
  - BILIARY COLIC [None]
